FAERS Safety Report 23940278 (Version 1)
Quarter: 2024Q2

REPORT INFORMATION
  Report Type: Spontaneous
  Country: FR (occurrence: FR)
  Receive Date: 20240605
  Receipt Date: 20240605
  Transmission Date: 20240715
  Serious: Yes (Other)
  Sender: FDA-Public Use
  Company Number: FR-CELLTRION INC.-2024FR013269

PATIENT

DRUGS (2)
  1. INFLIXIMAB [Interacting]
     Active Substance: INFLIXIMAB
     Indication: Hidradenitis
     Dosage: 400 MG, 1 CYCLE
     Route: 042
     Dates: start: 20210713, end: 20220325
  2. INFLECTRA [Suspect]
     Active Substance: INFLIXIMAB-DYYB
     Indication: Hidradenitis
     Dosage: 400 MG
     Route: 042
     Dates: start: 20180914, end: 20210514

REACTIONS (2)
  - Dilated cardiomyopathy [Not Recovered/Not Resolved]
  - Intentional product use issue [Unknown]

NARRATIVE: CASE EVENT DATE: 20210901
